FAERS Safety Report 10242807 (Version 1)
Quarter: 2014Q2

REPORT INFORMATION
  Report Type: Spontaneous
  Country: US (occurrence: US)
  Receive Date: 20140618
  Receipt Date: 20140618
  Transmission Date: 20141212
  Serious: No
  Sender: FDA-Public Use
  Company Number: US-009507513-1405USA011765

PATIENT
  Sex: Male

DRUGS (3)
  1. JANUMET [Suspect]
     Dosage: 50/1000 MG, BID
     Route: 048
  2. VICTOZA [Suspect]
     Dosage: 1.2 MG, UNK
  3. GLIPIZIDE [Concomitant]
     Dosage: 10 MG, BID

REACTIONS (1)
  - Glycosylated haemoglobin increased [Unknown]
